FAERS Safety Report 6550769-5 (Version None)
Quarter: 2010Q1

REPORT INFORMATION
  Report Type: 
  Country: None (occurrence: None)
  Receive Date: 20100125
  Receipt Date: 20100115
  Transmission Date: 20100710
  Serious: Yes (Other)
  Sender: FDA-Public Use
  Company Number: PHHY2009GB51949

PATIENT
  Sex: Male

DRUGS (12)
  1. EXELON [Suspect]
     Indication: PARKINSON'S DISEASE
     Dosage: 4.6 MG, QD
     Dates: start: 20090618, end: 20090620
  2. VENLAFAXINE [Concomitant]
     Indication: DEPRESSION
     Dosage: 37.5 MG, BID
     Route: 048
  3. QUININE SULFATE [Concomitant]
     Dosage: 300 MG, QD
     Route: 048
  4. BISOPROLOL FUMARATE [Concomitant]
     Indication: ANGINA PECTORIS
     Dosage: 0.25 MG, QD
     Route: 048
  5. RANITIDINE [Concomitant]
     Indication: DYSPEPSIA
     Dosage: 300 MG, BID
     Route: 048
  6. METHOTREXATE [Concomitant]
     Indication: ARTHRITIS
     Dosage: 2.5 MG FOUR EACH SUNDAY
  7. CO-CARELDOPA [Concomitant]
     Indication: PARKINSON'S DISEASE
     Dosage: 125 MG, 6QD
  8. PREDNISOLONE [Concomitant]
     Indication: ARTHRITIS
     Dosage: 1MG TWO EACH DAY
     Route: 048
  9. AMANTADINE HYDROCHLORIDE [Concomitant]
     Indication: PARKINSON'S DISEASE
     Dosage: 100 MG, BID
     Route: 048
  10. FOLIC ACID [Concomitant]
     Indication: ARTHRITIS
     Dosage: 5MG ONE WEDNESDAY AND SATURDAY
     Route: 048
  11. SERETIDE [Concomitant]
     Dosage: 250 MG INHALER 2 PUFFS BID
  12. ALBUTEROL [Concomitant]
     Dosage: 100 MCG INHALER 2 PUFFS PRN

REACTIONS (4)
  - AKINESIA [None]
  - BRADYKINESIA [None]
  - EXTRAPYRAMIDAL DISORDER [None]
  - MUSCULOSKELETAL STIFFNESS [None]
